FAERS Safety Report 15367997 (Version 3)
Quarter: 2018Q4

REPORT INFORMATION
  Report Type: Spontaneous
  Country: US (occurrence: US)
  Receive Date: 20180910
  Receipt Date: 20181001
  Transmission Date: 20190204
  Serious: Yes (Hospitalization, Other)
  Sender: FDA-Public Use
  Company Number: US-LUNDBECK-DKLU2054081

PATIENT
  Age: 9 Year
  Sex: Male
  Weight: 19 kg

DRUGS (16)
  1. SABRIL [Suspect]
     Active Substance: VIGABATRIN
     Route: 048
  2. ALBUTEROL SULFATE. [Concomitant]
     Active Substance: ALBUTEROL SULFATE
     Indication: WHEEZING
     Dosage: 2.5MG/3ML
     Route: 065
  3. ALBUTEROL SULFATE. [Concomitant]
     Active Substance: ALBUTEROL SULFATE
     Indication: COUGH
  4. VITAMIN D3 [Concomitant]
     Active Substance: CHOLECALCIFEROL
     Indication: PRODUCT USED FOR UNKNOWN INDICATION
     Dosage: 400 UNIT/DROP
     Route: 048
  5. MIDAZOLAM [Concomitant]
     Active Substance: MIDAZOLAM HYDROCHLORIDE
     Indication: SEIZURE
     Route: 045
  6. SODIUM PHOSPHATE [Concomitant]
     Active Substance: SODIUM PHOSPHATE
     Indication: PRODUCT USED FOR UNKNOWN INDICATION
     Dosage: 9.5-3.5G/59ML
     Route: 054
  7. ALBUTEROL SULFATE. [Concomitant]
     Active Substance: ALBUTEROL SULFATE
     Indication: DYSPNOEA
  8. MEDICAL MARIJUANA [Concomitant]
     Active Substance: CANNABIS SATIVA SUBSP. INDICA TOP
     Dosage: OIL
     Route: 048
  9. SABRIL [Suspect]
     Active Substance: VIGABATRIN
     Indication: LENNOX-GASTAUT SYNDROME
     Route: 048
     Dates: start: 20180414
  10. PULMICORT TURBUHALER [Concomitant]
     Active Substance: BUDESONIDE
     Dosage: 0.5MG/2ML
     Route: 065
  11. MIDAZOLAM [Concomitant]
     Active Substance: MIDAZOLAM HYDROCHLORIDE
     Dosage: 5 MG BY NASAL ROUTE DAILY AS NEEDED (USES INHALANTION DEVIDE AND PATIENT INHALES THROUGH NOSE)
     Route: 045
  12. DIASTAT ACUDIAL [Concomitant]
     Active Substance: DIAZEPAM
     Indication: SEIZURE CLUSTER
  13. PULMICORT TURBUHALER [Concomitant]
     Active Substance: BUDESONIDE
     Indication: PRODUCT USED FOR UNKNOWN INDICATION
     Dosage: 0.5MG/2ML
     Route: 065
     Dates: start: 20161029
  14. KEPPRA [Concomitant]
     Active Substance: LEVETIRACETAM
     Indication: SEIZURE
     Route: 048
     Dates: start: 20161206
  15. DIASTAT ACUDIAL [Concomitant]
     Active Substance: DIAZEPAM
     Indication: SEIZURE
     Dosage: 5-7.5-10MG KIT
     Route: 054
  16. MEDICAL MARIJUANA [Concomitant]
     Active Substance: CANNABIS SATIVA SUBSP. INDICA TOP
     Indication: PRODUCT USED FOR UNKNOWN INDICATION
     Dosage: COMPOUNDED
     Route: 048

REACTIONS (5)
  - Hypoxia [Recovered/Resolved]
  - Pneumonia aspiration [Recovered/Resolved]
  - Epilepsy [Recovering/Resolving]
  - Pneumonia [Recovering/Resolving]
  - Lethargy [Unknown]

NARRATIVE: CASE EVENT DATE: 20180831
